FAERS Safety Report 14541872 (Version 2)
Quarter: 2018Q1

REPORT INFORMATION
  Report Type: Spontaneous
  Country: BE (occurrence: BE)
  Receive Date: 20180216
  Receipt Date: 20180306
  Transmission Date: 20180509
  Serious: Yes (Other)
  Sender: FDA-Public Use
  Company Number: BE-GLAXOSMITHKLINE-BE2018GSK026422

PATIENT
  Sex: Female

DRUGS (5)
  1. SALBUTAMOL [Suspect]
     Active Substance: ALBUTEROL
     Dosage: 10 MG 5 TIMES DAILY
     Route: 064
  2. SALBUTAMOL [Suspect]
     Active Substance: ALBUTEROL
     Dosage: 10 MG, TID
     Route: 064
  3. BETAMETHASONE. [Suspect]
     Active Substance: BETAMETHASONE
     Dosage: 12 MG, UNK
     Route: 064
  4. BETAMETHASONE. [Suspect]
     Active Substance: BETAMETHASONE
     Indication: FOETAL HEART RATE INCREASED
     Dosage: 12 MG, UNK
     Route: 064
  5. SALBUTAMOL [Suspect]
     Active Substance: ALBUTEROL
     Indication: FOETAL HEART RATE INCREASED
     Dosage: 10 MG, BID
     Route: 064

REACTIONS (7)
  - Respiratory distress [Recovering/Resolving]
  - Foetal exposure during pregnancy [Recovering/Resolving]
  - Apnoea [Recovering/Resolving]
  - Neonatal respiratory distress syndrome [Recovering/Resolving]
  - Tachypnoea [Recovering/Resolving]
  - Condition aggravated [Recovering/Resolving]
  - Premature baby [Recovering/Resolving]
